FAERS Safety Report 9554313 (Version 2)
Quarter: 2013Q3

REPORT INFORMATION
  Report Type: Spontaneous
  Country: US (occurrence: US)
  Receive Date: 20130925
  Receipt Date: 20130925
  Transmission Date: 20140515
  Serious: Yes (Life-Threatening, Other)
  Sender: FDA-Public Use
  Company Number: US-SANOFI-AVENTIS-FABR-1003590

PATIENT
  Age: 55 Year
  Sex: Female
  Weight: 88 kg

DRUGS (9)
  1. FABRAZYME [Suspect]
     Indication: FABRY^S DISEASE
     Dosage: UNK
     Route: 042
     Dates: start: 200601
  2. ASPIRIN [Concomitant]
     Indication: CEREBROVASCULAR ACCIDENT PROPHYLAXIS
  3. NORCO [Concomitant]
     Indication: NEURALGIA
  4. COZAAR [Concomitant]
     Indication: HYPERTENSION
  5. TOPROL XL [Concomitant]
     Indication: HYPERTENSION
  6. RIZATRIPTAN [Concomitant]
     Indication: MIGRAINE
  7. TEMAZEPAM [Concomitant]
     Indication: SLEEP DISORDER
  8. TRAMADOL [Concomitant]
     Indication: ANALGESIC THERAPY
  9. VENLAFAXINE [Concomitant]
     Indication: DEPRESSION

REACTIONS (1)
  - Rectal cancer [Not Recovered/Not Resolved]
